FAERS Safety Report 5874957-6 (Version None)
Quarter: 2008Q3

REPORT INFORMATION
  Report Type: 
  Country: None (occurrence: None)
  Receive Date: 20080908
  Receipt Date: 20080908
  Transmission Date: 20090109
  Serious: Yes (Other)
  Sender: FDA-Public Use
  Company Number: None

PATIENT
  Age: 43 Year
  Sex: Female
  Weight: 89.8122 kg

DRUGS (1)
  1. EFFEXOR XR [Suspect]
     Indication: PREMENSTRUAL SYNDROME
     Dosage: 75MG 1 A DAY PO
     Route: 048
     Dates: start: 20030701, end: 20080806

REACTIONS (9)
  - BALANCE DISORDER [None]
  - DISTURBANCE IN ATTENTION [None]
  - DIZZINESS [None]
  - FEAR [None]
  - IMPAIRED WORK ABILITY [None]
  - MEMORY IMPAIRMENT [None]
  - PARAESTHESIA [None]
  - VISUAL IMPAIRMENT [None]
  - VOMITING [None]
